FAERS Safety Report 12210751 (Version 1)
Quarter: 2016Q1

REPORT INFORMATION
  Report Type: Spontaneous
  Country: US (occurrence: US)
  Receive Date: 20160325
  Receipt Date: 20160325
  Transmission Date: 20160526
  Serious: Yes (Death, Hospitalization, Other)
  Sender: FDA-Public Use
  Company Number: US-GLENMARK PHARMACEUTICALS EUROPE LIMITED-GGEL20120700865

PATIENT
  Age: 48 Year
  Sex: Female

DRUGS (1)
  1. LAMOTRIGINE TABLETS [Suspect]
     Active Substance: LAMOTRIGINE
     Indication: PRODUCT USED FOR UNKNOWN INDICATION
     Dosage: 7.5 G, UNK
     Route: 048

REACTIONS (11)
  - Cardiac arrest [Unknown]
  - Supraventricular tachycardia [Unknown]
  - Brain hypoxia [Fatal]
  - Circulatory collapse [Unknown]
  - Myoclonus [Unknown]
  - Brain oedema [Unknown]
  - Tachycardia [Unknown]
  - Status epilepticus [Unknown]
  - Generalised tonic-clonic seizure [Unknown]
  - Overdose [Unknown]
  - Hyperreflexia [Unknown]
